FAERS Safety Report 10891910 (Version 4)
Quarter: 2016Q1

REPORT INFORMATION
  Report Type: Report from Study
  Country: SE (occurrence: SE)
  Receive Date: 20150306
  Receipt Date: 20160229
  Transmission Date: 20160525
  Serious: Yes (Death)
  Sender: FDA-Public Use
  Company Number: SE-CELGENE-150-C5013-14052219

PATIENT
  Age: 69 Year
  Sex: Male
  Weight: 92 kg

DRUGS (23)
  1. IDARUBICIN [Concomitant]
     Active Substance: IDARUBICIN
     Indication: CHRONIC LYMPHOCYTIC LEUKAEMIA
     Route: 041
     Dates: start: 20140522
  2. CYTARABINE. [Concomitant]
     Active Substance: CYTARABINE
     Route: 041
     Dates: start: 20150123
  3. DEXACORTAL [Concomitant]
     Active Substance: DEXAMETHASONE
     Indication: PRODUCT USED FOR UNKNOWN INDICATION
     Dosage: DOSAGE 10, FULL DOSAGE 22
     Route: 048
  4. CITALOPRAM [Concomitant]
     Active Substance: CITALOPRAM HYDROBROMIDE
     Indication: ANXIETY
     Route: 048
     Dates: start: 2005
  5. CYTARABINE. [Concomitant]
     Active Substance: CYTARABINE
     Route: 065
     Dates: start: 20140903, end: 20140907
  6. DICLOFENAC [Concomitant]
     Active Substance: DICLOFENAC
     Indication: PAIN IN EXTREMITY
     Route: 065
  7. VALACICLOVIR [Concomitant]
     Active Substance: VALACYCLOVIR HYDROCHLORIDE
     Indication: HERPES ZOSTER
     Route: 048
     Dates: start: 20120830
  8. ONCOVIN [Concomitant]
     Active Substance: VINCRISTINE SULFATE
     Route: 040
     Dates: start: 20140529
  9. DICLOFENAC [Concomitant]
     Active Substance: DICLOFENAC
     Indication: MUSCULOSKELETAL PAIN
     Route: 065
  10. ONCOVIN [Concomitant]
     Active Substance: VINCRISTINE SULFATE
     Indication: CHRONIC LYMPHOCYTIC LEUKAEMIA
     Route: 040
     Dates: start: 20140522
  11. IDARUBICIN [Concomitant]
     Active Substance: IDARUBICIN
     Route: 041
     Dates: start: 20140530
  12. ZARZIO [Concomitant]
     Active Substance: FILGRASTIM
     Indication: PRODUCT USED FOR UNKNOWN INDICATION
     Route: 058
  13. DICLOFENAC [Concomitant]
     Active Substance: DICLOFENAC
     Indication: ARTHRALGIA
     Route: 048
     Dates: start: 20130101
  14. LOPERAMIDE [Concomitant]
     Active Substance: LOPERAMIDE
     Indication: DIARRHOEA
     Route: 048
     Dates: start: 20130529
  15. IDARUBICIN [Concomitant]
     Active Substance: IDARUBICIN
     Route: 041
     Dates: start: 20140529
  16. CYTARABINE. [Concomitant]
     Active Substance: CYTARABINE
     Indication: CHRONIC LYMPHOCYTIC LEUKAEMIA
     Route: 065
     Dates: start: 20140521
  17. VALACICLOVIR [Concomitant]
     Active Substance: VALACYCLOVIR HYDROCHLORIDE
     Indication: INFECTION PROPHYLAXIS
  18. CYTARABINE. [Concomitant]
     Active Substance: CYTARABINE
     Route: 041
     Dates: start: 20150306, end: 20150310
  19. CYTARABINE. [Concomitant]
     Active Substance: CYTARABINE
     Indication: ACUTE LYMPHOCYTIC LEUKAEMIA
     Route: 065
  20. CYTARABINE. [Concomitant]
     Active Substance: CYTARABINE
     Route: 065
     Dates: start: 20140913, end: 20140917
  21. POSACONAZOLE [Concomitant]
     Active Substance: POSACONAZOLE
     Indication: PROPHYLAXIS
     Route: 065
  22. CC-5013 [Suspect]
     Active Substance: LENALIDOMIDE
     Indication: CHRONIC LYMPHOCYTIC LEUKAEMIA
     Route: 048
     Dates: start: 20110603
  23. CC-5013 [Suspect]
     Active Substance: LENALIDOMIDE
     Route: 048
     Dates: start: 20140124, end: 20140319

REACTIONS (1)
  - Acute lymphocytic leukaemia [Fatal]

NARRATIVE: CASE EVENT DATE: 20140414
